FAERS Safety Report 18549456 (Version 2)
Quarter: 2020Q4

REPORT INFORMATION
  Report Type: Spontaneous
  Country: US (occurrence: US)
  Receive Date: 20201126
  Receipt Date: 20201218
  Transmission Date: 20210114
  Serious: Yes (Hospitalization, Other)
  Sender: FDA-Public Use
  Company Number: US-HIKMA PHARMACEUTICALS USA INC.-US-H14001-20-52671

PATIENT
  Age: 68 Year
  Sex: Male
  Weight: 65.8 kg

DRUGS (5)
  1. METHYLPREDNISOLONE. [Suspect]
     Active Substance: METHYLPREDNISOLONE
     Indication: HYPOXIA
  2. TOCILIZUMAB. [Suspect]
     Active Substance: TOCILIZUMAB
     Indication: HYPOXIA
     Route: 042
  3. TOCILIZUMAB. [Suspect]
     Active Substance: TOCILIZUMAB
     Indication: COVID-19
  4. METHYLPREDNISOLONE. [Suspect]
     Active Substance: METHYLPREDNISOLONE
     Indication: COVID-19
     Dosage: HOSPITAL DAYS 4-6, 8-10
     Route: 042
  5. OXYGEN. [Concomitant]
     Active Substance: OXYGEN
     Indication: COVID-19
     Route: 065

REACTIONS (9)
  - Disseminated strongyloidiasis [Not Recovered/Not Resolved]
  - Streptococcal infection [Recovered/Resolved]
  - Staphylococcal infection [Recovered/Resolved]
  - Bacteraemia [Unknown]
  - Meningitis bacterial [Unknown]
  - Hypotension [Unknown]
  - Citrobacter infection [Recovered/Resolved]
  - Pseudomonas infection [Recovered/Resolved]
  - Bacterial sepsis [Unknown]
